FAERS Safety Report 12537264 (Version 1)
Quarter: 2016Q3

REPORT INFORMATION
  Report Type: Spontaneous
  Country: TN (occurrence: TN)
  Receive Date: 20160707
  Receipt Date: 20160707
  Transmission Date: 20161109
  Serious: Yes (Other)
  Sender: FDA-Public Use
  Company Number: TN-ACTAVIS-2016-14663

PATIENT
  Age: 16 Year
  Sex: Female

DRUGS (6)
  1. BLEOMYCIN [Concomitant]
     Active Substance: BLEOMYCIN SULFATE
     Indication: TERATOMA
     Dosage: DAYS 1, 8, AND 15, EVERY 21 DAYS FOR 4 CYCLES
     Route: 042
  2. ETOPOSIDE (UNKNOWN) [Suspect]
     Active Substance: ETOPOSIDE
     Indication: TERATOMA
     Dosage: DAY 1 TO 5, EVERY 21 DAYS FOR 4 CYCLES
     Route: 042
  3. CISPLATIN (UNKNOWN) [Suspect]
     Active Substance: CISPLATIN
     Indication: PERITONEAL GLIOMATOSIS
     Dosage: DAY 1 TO 5, EVERY 21 DAYS FOR 4 CYCLES
     Route: 042
  4. BLEOMYCIN [Concomitant]
     Active Substance: BLEOMYCIN SULFATE
     Indication: PERITONEAL GLIOMATOSIS
     Dosage: DAYS 1, 8, AND 15, EVERY 21 DAYS FOR 4 CYCLES
     Route: 042
  5. ETOPOSIDE (UNKNOWN) [Suspect]
     Active Substance: ETOPOSIDE
     Indication: PERITONEAL GLIOMATOSIS
     Dosage: DAY 1 TO 5, EVERY 21 DAYS FOR 4 CYCLES
     Route: 042
  6. CISPLATIN (UNKNOWN) [Suspect]
     Active Substance: CISPLATIN
     Indication: TERATOMA
     Dosage: DAY 1 TO 5, EVERY 21 DAYS FOR 4 CYCLES
     Route: 042

REACTIONS (1)
  - Cerebral venous thrombosis [Recovered/Resolved]
